FAERS Safety Report 7233314-0 (Version None)
Quarter: 2011Q1

REPORT INFORMATION
  Report Type: 
  Country: None (occurrence: None)
  Receive Date: 20110119
  Receipt Date: 20110107
  Transmission Date: 20110831
  Serious: Yes (Other)
  Sender: FDA-Public Use
  Company Number: US-ELI_LILLY_AND_COMPANY-US201008007620

PATIENT
  Sex: Female
  Weight: 50.794 kg

DRUGS (1)
  1. FORTEO [Suspect]
     Indication: OSTEOPOROSIS
     Dosage: 20 UG, DAILY (1/D)
     Route: 058
     Dates: start: 20100729, end: 20101201

REACTIONS (5)
  - NEURILEMMOMA [None]
  - WEIGHT DECREASED [None]
  - RETCHING [None]
  - NAUSEA [None]
  - DECREASED APPETITE [None]
